FAERS Safety Report 23270319 (Version 1)
Quarter: 2023Q4

REPORT INFORMATION
  Report Type: Spontaneous
  Country: US (occurrence: US)
  Receive Date: 20231207
  Receipt Date: 20231207
  Transmission Date: 20240110
  Serious: No
  Sender: FDA-Public Use
  Company Number: US-ADAREPHARM-2023-US-000005

PATIENT
  Sex: Female

DRUGS (1)
  1. DEXMETHYLPHENIDATE HYDROCHLORIDE [Suspect]
     Active Substance: DEXMETHYLPHENIDATE HYDROCHLORIDE
     Indication: Attention deficit hyperactivity disorder
     Route: 048
     Dates: end: 202304

REACTIONS (3)
  - Drug screen negative [Recovered/Resolved]
  - Feeling jittery [Recovered/Resolved]
  - Drug effect less than expected [Recovered/Resolved]
